FAERS Safety Report 8911579 (Version 1)
Quarter: 2012Q4

REPORT INFORMATION
  Report Type: 
  Country: SE (occurrence: SE)
  Receive Date: 20121116
  Receipt Date: 20121116
  Transmission Date: 20130627
  Serious: Yes (Hospitalization)
  Sender: FDA-Public Use
  Company Number: SE-PFIZER INC-2012279904

PATIENT
  Age: 60 Year
  Sex: Female
  Weight: 61 kg

DRUGS (8)
  1. GENOTROPIN [Suspect]
     Dosage: 0.5 mg, 1x/day, 7 injections/week
     Route: 058
     Dates: start: 20090402
  2. HYDROKORTISON [Concomitant]
     Indication: ADRENAL INSUFFICIENCY
     Dosage: UNK
     Dates: start: 20090101
  3. LEVOTHYROXINE [Concomitant]
     Indication: HYPOTHYROIDISM
     Dosage: UNK
     Dates: start: 20090101
  4. PROGYNON [Concomitant]
     Indication: LUTEINISING HORMONE DEFICIENCY
     Dosage: UNK
     Dates: start: 20090101
  5. PROGYNON [Concomitant]
     Indication: FOLLICLE-STIMULATING HORMONE DEFICIENCY
  6. PROGYNON [Concomitant]
     Indication: HYPOGONADISM FEMALE
  7. SIMVASTATIN [Concomitant]
     Indication: HYPERLIPIDEMIA
     Dosage: UNK
     Dates: start: 20090101
  8. TROMBYL [Concomitant]
     Indication: CLOTTING DISORDER
     Dosage: UNK
     Dates: start: 20090101

REACTIONS (1)
  - Arthropathy [Unknown]
